FAERS Safety Report 23479914 (Version 2)
Quarter: 2025Q1

REPORT INFORMATION
  Report Type: Spontaneous
  Country: US (occurrence: US)
  Receive Date: 20240205
  Receipt Date: 20250226
  Transmission Date: 20250409
  Serious: No
  Sender: UCB
  Company Number: US-UCBSA-2023045879

PATIENT
  Age: 67 Year
  Sex: Male

DRUGS (20)
  1. LEVETIRACETAM [Suspect]
     Active Substance: LEVETIRACETAM
     Indication: Seizure
  2. MIDAZOLAM HYDROCHLORIDE [Suspect]
     Active Substance: MIDAZOLAM HYDROCHLORIDE
     Indication: Seizure
  3. MIDAZOLAM HYDROCHLORIDE [Suspect]
     Active Substance: MIDAZOLAM HYDROCHLORIDE
  4. ATIVAN [Suspect]
     Active Substance: LORAZEPAM
     Indication: Tachycardia
     Route: 042
  5. ATIVAN [Suspect]
     Active Substance: LORAZEPAM
     Indication: Tremor
  6. ATIVAN [Suspect]
     Active Substance: LORAZEPAM
     Indication: Seizure
  7. DIAZEPAM [Suspect]
     Active Substance: DIAZEPAM
     Indication: Tachycardia
     Route: 042
  8. DIAZEPAM [Suspect]
     Active Substance: DIAZEPAM
     Indication: Tremor
  9. DIAZEPAM [Suspect]
     Active Substance: DIAZEPAM
     Indication: Seizure
  10. KETAMINE [Suspect]
     Active Substance: KETAMINE
     Indication: Seizure
  11. KETAMINE [Suspect]
     Active Substance: KETAMINE
  12. AMIFAMPRIDINE [Concomitant]
     Active Substance: AMIFAMPRIDINE
     Indication: Suicide attempt
  13. AMIFAMPRIDINE [Concomitant]
     Active Substance: AMIFAMPRIDINE
     Indication: Myasthenic syndrome
  14. ACTIVATED CHARCOAL [Concomitant]
     Active Substance: ACTIVATED CHARCOAL
     Indication: Overdose
  15. ACETAMINOPHEN [Concomitant]
     Active Substance: ACETAMINOPHEN
     Indication: Suicide attempt
  16. SODIUM CHLORIDE [Concomitant]
     Active Substance: SODIUM CHLORIDE
     Indication: Overdose
     Route: 042
  17. PREDNISONE [Concomitant]
     Active Substance: PREDNISONE
     Indication: Product used for unknown indication
  18. PYRIDOSTIGMINE [Concomitant]
     Active Substance: PYRIDOSTIGMINE
     Indication: Product used for unknown indication
  19. SERTRALINE [Concomitant]
     Active Substance: SERTRALINE HYDROCHLORIDE
     Indication: Product used for unknown indication
  20. TRAZODONE [Concomitant]
     Active Substance: TRAZODONE HYDROCHLORIDE
     Indication: Product used for unknown indication

REACTIONS (3)
  - Multiple-drug resistance [Unknown]
  - Prescribed overdose [Unknown]
  - Off label use [Unknown]
